FAERS Safety Report 17420146 (Version 7)
Quarter: 2020Q2

REPORT INFORMATION
  Report Type: Report from Study
  Country: US (occurrence: US)
  Receive Date: 20200214
  Receipt Date: 20200414
  Transmission Date: 20200713
  Serious: Yes (Hospitalization)
  Sender: FDA-Public Use
  Company Number: NVSC2020US012610

PATIENT
  Age: 55 Year
  Sex: Female
  Weight: 87.8 kg

DRUGS (19)
  1. CFZ533 [Suspect]
     Active Substance: ISCALIMAB
     Indication: RENAL TRANSPLANT
     Dosage: 4 ML, Q2W
     Route: 058
     Dates: start: 20191219
  2. PREDNISONE. [Suspect]
     Active Substance: PREDNISONE
     Dosage: UNK
     Route: 065
     Dates: start: 20191228
  3. VALCYTE [Concomitant]
     Active Substance: VALGANCICLOVIR HYDROCHLORIDE
     Indication: PROPHYLAXIS
     Dosage: UNK
     Route: 065
     Dates: start: 20191220
  4. OXYCODONE [Concomitant]
     Active Substance: OXYCODONE
     Indication: PROCEDURAL PAIN
     Dosage: UNK
     Route: 065
     Dates: start: 20191220, end: 20200103
  5. NIFEDIPINE. [Concomitant]
     Active Substance: NIFEDIPINE
     Dosage: UNK
     Route: 065
     Dates: start: 20200116, end: 20200131
  6. MYCOPHENOLATE MOFETIL. [Suspect]
     Active Substance: MYCOPHENOLATE MOFETIL
     Indication: RENAL TRANSPLANT
     Dosage: 1 MG, BID
     Route: 048
     Dates: start: 20191219
  7. FAMOTIDINE. [Concomitant]
     Active Substance: FAMOTIDINE
     Indication: PROPHYLAXIS
     Dosage: UNK
     Route: 065
     Dates: start: 20191223
  8. WELLBUTRIN [Concomitant]
     Active Substance: BUPROPION HYDROCHLORIDE
     Indication: DEPRESSION
  9. PREDNISONE. [Suspect]
     Active Substance: PREDNISONE
     Dosage: UNK
     Route: 065
     Dates: start: 20191227, end: 20191227
  10. NIFEDIPINE. [Concomitant]
     Active Substance: NIFEDIPINE
     Indication: HYPERTENSION
     Dosage: UNK
     Route: 065
     Dates: start: 20191220, end: 20200115
  11. METOPROLOL. [Concomitant]
     Active Substance: METOPROLOL
     Indication: HYPERTENSION
     Dosage: UNK
     Route: 005
     Dates: start: 20191224, end: 20200206
  12. TOPROL XL [Concomitant]
     Active Substance: METOPROLOL SUCCINATE
     Indication: HYPERTENSION
     Dosage: UNK
     Route: 065
     Dates: start: 20200120
  13. NYSTATIN. [Concomitant]
     Active Substance: NYSTATIN
     Indication: ANTIFUNGAL PROPHYLAXIS
     Dosage: UNK
     Route: 065
     Dates: start: 20191219
  14. PREDNISONE. [Suspect]
     Active Substance: PREDNISONE
     Indication: GENERAL PHYSICAL CONDITION
     Dosage: UNK
     Route: 065
     Dates: start: 20191226, end: 20191226
  15. ADALAT CC [Concomitant]
     Active Substance: NIFEDIPINE
     Indication: HYPERTENSION
     Dosage: UNK
     Route: 065
     Dates: start: 20191223
  16. WELLBUTRIN [Concomitant]
     Active Substance: BUPROPION HYDROCHLORIDE
     Indication: ANXIETY
     Dosage: UNK
     Route: 065
     Dates: start: 20191220, end: 20200103
  17. THYMOGLOBULINE [Suspect]
     Active Substance: LAPINE T-LYMPHOCYTE IMMUNE GLOBULIN
     Indication: RENAL TRANSPLANT
     Dosage: UNK
     Route: 065
     Dates: start: 20200116, end: 20200125
  18. PREDNISONE. [Suspect]
     Active Substance: PREDNISONE
     Indication: RENAL TRANSPLANT
     Dosage: UNK
     Route: 065
     Dates: start: 20191225, end: 20191225
  19. BACTRIM [Concomitant]
     Active Substance: SULFAMETHOXAZOLE\TRIMETHOPRIM
     Indication: ANTIBIOTIC PROPHYLAXIS
     Dosage: UNK
     Route: 065
     Dates: start: 20191223

REACTIONS (1)
  - Kidney transplant rejection [Not Recovered/Not Resolved]

NARRATIVE: CASE EVENT DATE: 20200115
